FAERS Safety Report 13678520 (Version 3)
Quarter: 2017Q3

REPORT INFORMATION
  Report Type: Spontaneous
  Country: US (occurrence: US)
  Receive Date: 20170622
  Receipt Date: 20170705
  Transmission Date: 20171127
  Serious: Yes (Hospitalization, Other)
  Sender: FDA-Public Use
  Company Number: US-PFIZER INC-2017257257

PATIENT
  Age: 80 Year
  Sex: Male

DRUGS (7)
  1. ELIQUIS [Suspect]
     Active Substance: APIXABAN
     Indication: ANTICOAGULANT THERAPY
     Dosage: 5 MG, 2X/DAY
     Route: 065
  2. REVATIO [Suspect]
     Active Substance: SILDENAFIL CITRATE
     Indication: PULMONARY HYPERTENSION
     Dosage: 2 TAB, 3X/DAY
     Route: 065
  3. SYMBICOCT [Concomitant]
     Indication: SINUSITIS
     Dosage: UNK
     Route: 045
  4. SYMBICOCT [Concomitant]
     Indication: LUNG DISORDER
     Dosage: UNK
     Route: 065
  5. POTASSIUM CHLORIDE. [Concomitant]
     Active Substance: POTASSIUM CHLORIDE
     Dosage: 2 TAB, 2X/DAY
     Route: 048
  6. LASIX [Concomitant]
     Active Substance: FUROSEMIDE
     Dosage: 20 MG, UNK
     Route: 048
  7. TRACLEER [Concomitant]
     Active Substance: BOSENTAN
     Indication: LUNG DISORDER
     Dosage: 125 MG, 2X/DAY
     Route: 065

REACTIONS (7)
  - Pneumonia [Unknown]
  - Fall [Unknown]
  - Tooth disorder [Unknown]
  - Weight decreased [Unknown]
  - Epistaxis [Unknown]
  - Depressed level of consciousness [Unknown]
  - Myocardial infarction [Unknown]

NARRATIVE: CASE EVENT DATE: 201612
